FAERS Safety Report 22338695 (Version 1)
Quarter: 2023Q2

REPORT INFORMATION
  Report Type: Spontaneous
  Country: ES (occurrence: ES)
  Receive Date: 20230518
  Receipt Date: 20230518
  Transmission Date: 20230722
  Serious: Yes (Other)
  Sender: FDA-Public Use
  Company Number: ES-SUN PHARMACEUTICAL INDUSTRIES LTD-2023RR-388558

PATIENT
  Age: 36 Year
  Sex: Male

DRUGS (4)
  1. AMOXICILLIN\CLAVULANIC ACID [Suspect]
     Active Substance: AMOXICILLIN\CLAVULANIC ACID
     Indication: Erythema
     Dosage: UNK
     Route: 065
  2. IBUPROFEN [Suspect]
     Active Substance: IBUPROFEN
     Indication: Erythema
     Dosage: UNK
     Route: 065
  3. ACETAMINOPHEN [Concomitant]
     Active Substance: ACETAMINOPHEN
     Indication: Erythema
     Dosage: UNK
     Route: 065
  4. METAMIZOLE [Concomitant]
     Active Substance: METAMIZOLE
     Indication: Erythema
     Dosage: UNK
     Route: 065

REACTIONS (2)
  - Acute generalised exanthematous pustulosis [Unknown]
  - Disease recurrence [Unknown]
